FAERS Safety Report 8777140 (Version 1)
Quarter: 2012Q4

REPORT INFORMATION
  Report Type: 
  Country: CN (occurrence: CN)
  Receive Date: 20120911
  Receipt Date: 20120911
  Transmission Date: 20130627
  Serious: Yes (Other)
  Sender: FDA-Public Use
  Company Number: CN-ABBOTT-12P-035-0978127-00

PATIENT
  Age: 78 None
  Sex: Female

DRUGS (2)
  1. DEPAKINE [Suspect]
     Indication: CEREBRAL INFARCTION
     Dosage: extended release daily
     Route: 048
     Dates: start: 20091128, end: 20091202
  2. DEPAKINE [Suspect]
     Indication: EPILEPSY

REACTIONS (2)
  - Altered state of consciousness [Recovered/Resolved]
  - Somnolence [Unknown]
